FAERS Safety Report 7027773-6 (Version None)
Quarter: 2010Q4

REPORT INFORMATION
  Report Type: 
  Country: None (occurrence: None)
  Receive Date: 20101001
  Receipt Date: 20101001
  Transmission Date: 20110411
  Serious: Yes (Hospitalization)
  Sender: FDA-Public Use
  Company Number: None

PATIENT
  Age: 63 Year
  Sex: Male
  Weight: 79.8 kg

DRUGS (2)
  1. CARBAMAZEPINE [Suspect]
     Indication: BIPOLAR DISORDER
     Dosage: 400 MG HS PO
     Route: 048
     Dates: start: 20000418
  2. CARBAMAZEPINE [Suspect]
     Indication: MANIA
     Dosage: 400 MG HS PO
     Route: 048
     Dates: start: 20000418

REACTIONS (2)
  - ANXIETY [None]
  - HYPONATRAEMIA [None]
